FAERS Safety Report 8800253 (Version 1)
Quarter: 2012Q4

REPORT INFORMATION
  Report Type: Report from Study
  Country: CA (occurrence: CA)
  Receive Date: 20120921
  Receipt Date: 20120921
  Transmission Date: 20130627
  Serious: Yes (Other)
  Sender: FDA-Public Use
  Company Number: CA-ROCHE-1129101

PATIENT
  Age: 47 Year
  Sex: Female

DRUGS (6)
  1. AVASTIN [Suspect]
     Indication: GLIOBLASTOMA
     Route: 042
     Dates: start: 20100628
  2. KEPPRA [Concomitant]
  3. TEGRETOL [Concomitant]
  4. DECADRON [Concomitant]
  5. RANITIDINE [Concomitant]
  6. EFFEXOR [Concomitant]

REACTIONS (3)
  - Eye irritation [Not Recovered/Not Resolved]
  - Hordeolum [Recovering/Resolving]
  - Eye infection [Recovered/Resolved]
